FAERS Safety Report 16563541 (Version 1)
Quarter: 2019Q3

REPORT INFORMATION
  Report Type: Spontaneous
  Country: US (occurrence: US)
  Receive Date: 20190712
  Receipt Date: 20190712
  Transmission Date: 20191004
  Serious: Yes (Hospitalization, Other)
  Sender: FDA-Public Use
  Company Number: US-AUROBINDO-AUR-APL-2019-038641

PATIENT

DRUGS (3)
  1. DULOXETINE DELAYED-RELEASE CAPSULES USP 20 MG [Suspect]
     Active Substance: DULOXETINE
     Dosage: 30 MILLIGRAM
     Route: 065
  2. DULOXETINE DELAYED-RELEASE CAPSULES USP 20 MG [Suspect]
     Active Substance: DULOXETINE
     Indication: PRODUCT USED FOR UNKNOWN INDICATION
     Dosage: 20 MILLIGRAM
     Route: 065
  3. DULOXETINE DELAYED-RELEASE CAPSULES USP 20 MG [Suspect]
     Active Substance: DULOXETINE
     Dosage: 80 MILLIGRAM, ONCE A DAY
     Route: 065

REACTIONS (9)
  - Seizure [Unknown]
  - Feeling abnormal [Unknown]
  - Withdrawal syndrome [Unknown]
  - Loss of consciousness [Unknown]
  - Fall [Unknown]
  - Tremor [Recovered/Resolved]
  - Speech disorder [Recovered/Resolved]
  - Chills [Unknown]
  - Tongue biting [Unknown]
